FAERS Safety Report 9319273 (Version 1)
Quarter: 2013Q2

REPORT INFORMATION
  Report Type: Report from Study
  Country: BR (occurrence: BR)
  Receive Date: 20130530
  Receipt Date: 20130530
  Transmission Date: 20140414
  Serious: Yes (Other)
  Sender: FDA-Public Use
  Company Number: PHHY2013BR054662

PATIENT
  Age: 61 Year
  Sex: Female

DRUGS (2)
  1. DIOVAN AMLO FIX [Suspect]
     Indication: BLOOD PRESSURE
     Dosage: 1 DF, (320/10 MG) DAILY
     Dates: end: 20120401
  2. ATORVASTATIN [Concomitant]
     Dosage: UNK UKN, UNK

REACTIONS (1)
  - Infarction [Recovered/Resolved]
